FAERS Safety Report 21676341 (Version 1)
Quarter: 2022Q4

REPORT INFORMATION
  Report Type: Spontaneous
  Country: CH (occurrence: CH)
  Receive Date: 20221202
  Receipt Date: 20221202
  Transmission Date: 20230113
  Serious: Yes (Hospitalization, Other)
  Sender: FDA-Public Use
  Company Number: None

PATIENT
  Age: 60 Year
  Sex: Female

DRUGS (9)
  1. LORAZEPAM [Suspect]
     Active Substance: LORAZEPAM
     Dosage: 25 MG IN TOTAL
     Dates: start: 20221112, end: 20221112
  2. DOXYCYCLINE HYCLATE [Suspect]
     Active Substance: DOXYCYCLINE HYCLATE
     Dosage: 1000 MG IN TOTAL
     Dates: start: 20221112, end: 20221112
  3. COLCHICINE [Suspect]
     Active Substance: COLCHICINE
     Dosage: 51 MG IN TOTAL
     Dates: start: 20221112, end: 20221112
  4. OXAZEPAM [Suspect]
     Active Substance: OXAZEPAM
     Dosage: 300 MG IN TOTAL
     Dates: start: 20221112, end: 20221112
  5. DESLORATADINE [Suspect]
     Active Substance: DESLORATADINE
     Dosage: 2000 MG IN TOTAL
     Dates: start: 20221112, end: 20221112
  6. FLUOXETINE [Suspect]
     Active Substance: FLUOXETINE HYDROCHLORIDE
     Dosage: 400 MG IN TOTAL
     Dates: start: 20221112, end: 20221112
  7. CETIRIZINE HYDROCHLORIDE [Suspect]
     Active Substance: CETIRIZINE HYDROCHLORIDE
     Dosage: 40 MG IN TOTAL
     Dates: start: 20221112, end: 20221112
  8. QUETIAPINE [Suspect]
     Active Substance: QUETIAPINE
     Dosage: 1500 MG IN TOTAL
     Dates: start: 20221112, end: 20221112
  9. PREDNISONE [Suspect]
     Active Substance: PREDNISONE
     Dosage: 80 MG IN TOTAL
     Dates: start: 20221112, end: 20221112

REACTIONS (4)
  - Multiple organ dysfunction syndrome [Recovering/Resolving]
  - Suicide attempt [Recovered/Resolved]
  - Intentional overdose [Recovered/Resolved]
  - Thrombocytopenia [Not Recovered/Not Resolved]

NARRATIVE: CASE EVENT DATE: 20221112
